FAERS Safety Report 9434338 (Version 1)
Quarter: 2013Q3

REPORT INFORMATION
  Report Type: Spontaneous
  Country: IE (occurrence: IE)
  Receive Date: 20130801
  Receipt Date: 20130801
  Transmission Date: 20140515
  Serious: No
  Sender: FDA-Public Use
  Company Number: IE-JNJFOC-20130713526

PATIENT
  Sex: 0

DRUGS (1)
  1. DUROGESIC D-TRANS [Suspect]
     Indication: PRODUCT USED FOR UNKNOWN INDICATION
     Route: 062

REACTIONS (2)
  - Product quality issue [Unknown]
  - Wrong technique in drug usage process [Unknown]
